FAERS Safety Report 8133817-0 (Version None)
Quarter: 2012Q1

REPORT INFORMATION
  Report Type: 
  Country: None (occurrence: None)
  Receive Date: 20120213
  Receipt Date: 20120213
  Transmission Date: 20120608
  Serious: Yes (Life-Threatening, Other)
  Sender: FDA-Public Use
  Company Number: None

PATIENT
  Age: 56 Year
  Sex: Male
  Weight: 92.986 kg

DRUGS (2)
  1. FINPECIA [Concomitant]
     Indication: ALOPECIA
  2. PROPECIA [Suspect]
     Indication: ALOPECIA
     Dosage: IMG
     Route: 048
     Dates: start: 19990801, end: 20120209

REACTIONS (5)
  - ANXIETY [None]
  - ARTHRALGIA [None]
  - MYALGIA [None]
  - ERECTILE DYSFUNCTION [None]
  - DEPRESSION [None]
